FAERS Safety Report 25193470 (Version 1)
Quarter: 2025Q2

REPORT INFORMATION
  Report Type: Report from Study
  Country: US (occurrence: US)
  Receive Date: 20250414
  Receipt Date: 20250414
  Transmission Date: 20250717
  Serious: Yes (Other)
  Sender: ALEXION PHARMACEUTICALS
  Company Number: US-ASTRAZENECA-202504USA008163US

PATIENT
  Age: 53 Year

DRUGS (1)
  1. STRENSIQ [Suspect]
     Active Substance: ASFOTASE ALFA
     Indication: Phosphorus metabolism disorder
     Dosage: 1 MILLIGRAM/KILOGRAM, SIX TIMES/WEEK
     Route: 065

REACTIONS (10)
  - Nephrolithiasis [Unknown]
  - Angiomyolipoma [Unknown]
  - Mean cell haemoglobin decreased [Unknown]
  - Renal mass [Unknown]
  - Back injury [Unknown]
  - Pain [Unknown]
  - Osteoporosis [Unknown]
  - Red blood cell count increased [Unknown]
  - Renal cyst [Unknown]
  - Renal milk of calcium cyst [Unknown]
